FAERS Safety Report 6822720-1 (Version None)
Quarter: 2010Q3

REPORT INFORMATION
  Report Type: 
  Country: None (occurrence: None)
  Receive Date: 20100708
  Receipt Date: 20100702
  Transmission Date: 20110219
  Serious: Yes (Other)
  Sender: FDA-Public Use
  Company Number: JP-PFIZER INC-2010083243

PATIENT
  Sex: Male

DRUGS (1)
  1. GENOTROPIN [Suspect]
     Route: 058

REACTIONS (2)
  - DISEASE PROGRESSION [None]
  - PITUITARY TUMOUR BENIGN [None]
